FAERS Safety Report 12228604 (Version 3)
Quarter: 2016Q2

REPORT INFORMATION
  Report Type: Spontaneous
  Country: IS (occurrence: IS)
  Receive Date: 20160401
  Receipt Date: 20160504
  Transmission Date: 20160815
  Serious: Yes (Other)
  Sender: FDA-Public Use
  Company Number: IS-ACTAVIS-2016-06823

PATIENT
  Sex: Male

DRUGS (3)
  1. QUETIAPIN ACTAVIS [Suspect]
     Active Substance: QUETIAPINE
     Indication: DRUG ABUSE
     Dosage: 2 DF, DAILY
     Route: 065
     Dates: start: 20160324
  2. QUETIAPIN ACTAVIS [Suspect]
     Active Substance: QUETIAPINE
     Dosage: 1 DF BEFORE SLEEP
     Route: 065
     Dates: start: 20160303
  3. QUETIAPIN ACTAVIS [Suspect]
     Active Substance: QUETIAPINE
     Dosage: 2 DF, DAILY
     Route: 065
     Dates: start: 20160307

REACTIONS (11)
  - Tension [Recovered/Resolved]
  - Violence-related symptom [Recovered/Resolved]
  - Thinking abnormal [Recovered/Resolved]
  - Joint stiffness [Recovered/Resolved]
  - Anxiety disorder [Recovered/Resolved]
  - Dysphoria [Recovered/Resolved]
  - Stupor [Recovered/Resolved]
  - Product substitution issue [Recovered/Resolved]
  - Mood altered [Recovered/Resolved]
  - Asthenia [Recovered/Resolved]
  - Delusion [Recovered/Resolved]
